FAERS Safety Report 22146558 (Version 1)
Quarter: 2023Q1

REPORT INFORMATION
  Report Type: Report from Study
  Country: US (occurrence: US)
  Receive Date: 20230328
  Receipt Date: 20230328
  Transmission Date: 20230418
  Serious: Yes (Other)
  Sender: FDA-Public Use
  Company Number: US-JNJFOC-20230346087

PATIENT
  Sex: Female

DRUGS (3)
  1. SPRAVATO [Suspect]
     Active Substance: ESKETAMINE
     Indication: Depression
     Dosage: ^56 MG, 10 TOTAL DOSES^
     Dates: start: 20221228, end: 20230214
  2. SPRAVATO [Suspect]
     Active Substance: ESKETAMINE
     Dosage: ^84 MG, 1 TOTAL DOSE^
     Dates: start: 20230217, end: 20230217
  3. SPRAVATO [Suspect]
     Active Substance: ESKETAMINE
     Dosage: RECENT DOSE: 21-MAR-2023?^56 MG, 9 TOTAL DOSES^
     Dates: start: 20230221, end: 20230316

REACTIONS (3)
  - Neuropathy peripheral [Unknown]
  - Dizziness [Unknown]
  - Feeling abnormal [Unknown]
